FAERS Safety Report 11826051 (Version 1)
Quarter: 2015Q4

REPORT INFORMATION
  Report Type: Spontaneous
  Country: NL (occurrence: NL)
  Receive Date: 20151211
  Receipt Date: 20151211
  Transmission Date: 20160305
  Serious: Yes (Life-Threatening, Hospitalization, Other)
  Sender: FDA-Public Use
  Company Number: NL-WATSON-2015-27038

PATIENT
  Age: 21 Year
  Sex: Female

DRUGS (4)
  1. BACLOFEN. [Suspect]
     Active Substance: BACLOFEN
     Indication: DEPENDENCE
     Dosage: 80 MG, DAILY
     Route: 048
  2. BACLOFEN. [Interacting]
     Active Substance: BACLOFEN
     Dosage: 40 MG, DAILY
     Route: 048
  3. SODIUM OXYBATE [Interacting]
     Active Substance: SODIUM OXYBATE
     Indication: DRUG ABUSE
     Dosage: 215 G, TOTAL
     Route: 065
  4. BACLOFEN. [Interacting]
     Active Substance: BACLOFEN
     Dosage: 30 MG, DAILY
     Route: 048

REACTIONS (8)
  - Coma [Recovered/Resolved]
  - Drug abuse [Unknown]
  - Off label use [Unknown]
  - Body temperature decreased [Unknown]
  - Respiratory depression [Recovered/Resolved]
  - Drug interaction [Unknown]
  - Hyporeflexia [Unknown]
  - Hypotonia [Unknown]
